FAERS Safety Report 5532153-6 (Version None)
Quarter: 2007Q4

REPORT INFORMATION
  Report Type: 
  Country: None (occurrence: None)
  Receive Date: 20071203
  Receipt Date: 20071119
  Transmission Date: 20080405
  Serious: Yes (Hospitalization)
  Sender: FDA-Public Use
  Company Number: TW-RANBAXY-2007RR-11576

PATIENT

DRUGS (2)
  1. RISPERIDONE 0.5MG FILM-COATED TABLETS [Suspect]
     Indication: SCHIZOPHRENIA, PARANOID TYPE
     Dosage: 3 MG, QD
  2. GINKGO BILOBA [Suspect]
     Indication: TINNITUS
     Dosage: 160 MG, QD

REACTIONS (2)
  - DRUG INTERACTION [None]
  - PRIAPISM [None]
